FAERS Safety Report 7802545-0 (Version None)
Quarter: 2011Q4

REPORT INFORMATION
  Report Type: 
  Country: None (occurrence: None)
  Receive Date: 20111005
  Receipt Date: 20110926
  Transmission Date: 20120403
  Serious: Yes (Other)
  Sender: FDA-Public Use
  Company Number: TPA2011A06038

PATIENT
  Age: 64 Year
  Sex: Male
  Weight: 83.9154 kg

DRUGS (9)
  1. DICYCLOMINE [Concomitant]
  2. VICTOZA [Concomitant]
  3. LIPITOR [Concomitant]
  4. ACTOS [Suspect]
     Indication: TYPE 2 DIABETES MELLITUS
     Dosage: 30 MG, 1 IN 1 D, PER ORAL
     Route: 048
     Dates: start: 20101128, end: 20110920
  5. ONGLYZA [Concomitant]
  6. GLIPIZIDE [Concomitant]
  7. TOPROL-XL [Concomitant]
  8. METFORMIN HCL [Concomitant]
  9. EXFORGE [Concomitant]

REACTIONS (1)
  - BLADDER CANCER [None]
